FAERS Safety Report 10367268 (Version 1)
Quarter: 2014Q3

REPORT INFORMATION
  Report Type: Spontaneous
  Country: US (occurrence: None)
  Receive Date: 20140805
  Receipt Date: 20140805
  Transmission Date: 20150326
  Serious: Yes (Other)
  Sender: FDA-Public Use
  Company Number: None

PATIENT
  Age: 62 Year
  Sex: Male
  Weight: 111.13 kg

DRUGS (1)
  1. BELVIQ [Suspect]
     Active Substance: LORCASERIN HYDROCHLORIDE
     Indication: WEIGHT CONTROL
     Dosage: 1 PILL ONCE DAILY TAKEN BY MOUTH
     Dates: start: 20140305, end: 20140801

REACTIONS (5)
  - Psychotic disorder [None]
  - Confusional state [None]
  - Cognitive disorder [None]
  - Mental disorder [None]
  - Disorientation [None]

NARRATIVE: CASE EVENT DATE: 20140801
